FAERS Safety Report 24684332 (Version 1)
Quarter: 2024Q4

REPORT INFORMATION
  Report Type: Spontaneous
  Country: US (occurrence: None)
  Receive Date: 20241202
  Receipt Date: 20241202
  Transmission Date: 20250115
  Serious: No
  Sender: Alvotech
  Company Number: US-ALVOTECHPMS-2024-ALVOTECHPMS-002653

PATIENT
  Age: 28 Year
  Sex: Female
  Weight: 108.86 kg

DRUGS (7)
  1. SIMLANDI [Suspect]
     Active Substance: ADALIMUMAB-RYVK
     Indication: Hidradenitis
     Dosage: INJECT 2 PENS EVERY OTHER WEEK
     Route: 058
  2. ALLEGRA [Concomitant]
     Active Substance: FEXOFENADINE HYDROCHLORIDE
     Dosage: DAILY
  3. HYDROXYZINE [Concomitant]
     Active Substance: HYDROXYZINE HYDROCHLORIDE
     Indication: Anxiety
     Dosage: 1 TABLET TWICE DAILY
  4. WELLBUTRIN [Concomitant]
     Active Substance: BUPROPION HYDROCHLORIDE
     Indication: Depression
  5. OXCARBAZEPINE [Concomitant]
     Active Substance: OXCARBAZEPINE
     Dosage: TABLET TWICE DAILY
  6. METHYLPHENIDATE [Concomitant]
     Active Substance: METHYLPHENIDATE
  7. COLESTIPOL [Concomitant]
     Active Substance: COLESTIPOL
     Dosage: TWICE DAILY

REACTIONS (2)
  - Petechiae [Unknown]
  - Urticaria [Not Recovered/Not Resolved]
